FAERS Safety Report 6244000-8 (Version None)
Quarter: 2009Q2

REPORT INFORMATION
  Report Type: 
  Country: None (occurrence: None)
  Receive Date: 20090623
  Receipt Date: 20090615
  Transmission Date: 20091009
  Serious: No
  Sender: FDA-Public Use
  Company Number: 20096939

PATIENT
  Sex: Male

DRUGS (5)
  1. BACLOFEN [Suspect]
     Indication: MUSCLE SPASTICITY
     Dosage: 50 - 82 MCG,DAILY,INTRATHECAL - SEE
     Route: 037
     Dates: start: 20080118
  2. MEVAOLOTIN [Concomitant]
  3. SALOBEL [Concomitant]
  4. HEAVY MAGNESIUM OXIDE [Concomitant]
  5. TIZANIDINE HCL [Concomitant]

REACTIONS (4)
  - IMPAIRED HEALING [None]
  - INCISION SITE ABSCESS [None]
  - INCISION SITE INFECTION [None]
  - SCRATCH [None]
